FAERS Safety Report 10557071 (Version 1)
Quarter: 2014Q4

REPORT INFORMATION
  Report Type: Spontaneous
  Country: US (occurrence: None)
  Receive Date: 20141029
  Receipt Date: 20141029
  Transmission Date: 20150529
  Serious: No
  Sender: FDA-Public Use
  Company Number: None

PATIENT
  Age: 4 Year
  Sex: Male
  Weight: 20.87 kg

DRUGS (1)
  1. PROAIR HFA [Suspect]
     Active Substance: ALBUTEROL SULFATE
     Indication: PULMONARY CONGESTION
     Dosage: 2ACCUATIONS; EVERY 2 TO 4 HOURS
     Route: 055
     Dates: start: 20141017, end: 20141028

REACTIONS (1)
  - Cough [None]

NARRATIVE: CASE EVENT DATE: 20141028
